FAERS Safety Report 10685417 (Version 2)
Quarter: 2014Q4

REPORT INFORMATION
  Report Type: Report from Study
  Country: US (occurrence: US)
  Receive Date: 20141231
  Receipt Date: 20141231
  Transmission Date: 20150529
  Serious: Yes (Death)
  Sender: FDA-Public Use
  Company Number: US-JNJFOC-20141204610

PATIENT
  Sex: Male
  Weight: 82.56 kg

DRUGS (1)
  1. REMICADE [Suspect]
     Active Substance: INFLIXIMAB
     Indication: RHEUMATOID ARTHRITIS
     Route: 042

REACTIONS (11)
  - Pneumonia [Unknown]
  - Wheezing [Unknown]
  - Dizziness [Unknown]
  - Visual impairment [Unknown]
  - Aspartate aminotransferase increased [Recovered/Resolved]
  - Haemorrhagic diathesis [Unknown]
  - Ear pain [Unknown]
  - Death [Fatal]
  - Sinus disorder [Unknown]
  - Alanine aminotransferase increased [Recovered/Resolved]
  - Contusion [Unknown]

NARRATIVE: CASE EVENT DATE: 2013
